FAERS Safety Report 9169775 (Version 6)
Quarter: 2013Q3

REPORT INFORMATION
  Report Type: Spontaneous
  Country: GB (occurrence: GB)
  Receive Date: 20130318
  Receipt Date: 20130828
  Transmission Date: 20140515
  Serious: Yes (Other)
  Sender: FDA-Public Use
  Company Number: GB-AMGEN-GBRSP2013016399

PATIENT
  Age: 67 Year
  Sex: Female

DRUGS (2)
  1. PROLIA [Suspect]
     Indication: OSTEOPOROSIS
     Dosage: UNK
     Route: 065
     Dates: start: 20111110
  2. PROPRANOLOL [Concomitant]
     Indication: MIGRAINE

REACTIONS (7)
  - Exposed bone in jaw [Unknown]
  - Osteonecrosis of jaw [Unknown]
  - Gingival pain [Unknown]
  - Dysgeusia [Unknown]
  - Tooth disorder [Unknown]
  - Mucosal inflammation [Unknown]
  - Musculoskeletal pain [Unknown]
